FAERS Safety Report 8521776-8 (Version None)
Quarter: 2012Q3

REPORT INFORMATION
  Report Type: 
  Country: None (occurrence: None)
  Receive Date: 20120719
  Receipt Date: 20120706
  Transmission Date: 20120928
  Serious: No
  Sender: FDA-Public Use
  Company Number: US-ASTRAZENECA-2012SE46002

PATIENT
  Age: 81 Year
  Sex: Male
  Weight: 77.6 kg

DRUGS (5)
  1. IPATROPIUM BROMIDE ALBUTEROL [Concomitant]
  2. LISINOPRIL [Concomitant]
  3. VITAMIN TAB [Concomitant]
  4. PULMICORT [Suspect]
     Indication: ASTHMA
     Dosage: 0.5 MG TWO TIMES A DAY
     Route: 055
  5. DILTIAZEM [Concomitant]

REACTIONS (2)
  - OFF LABEL USE [None]
  - HAIR GROWTH ABNORMAL [None]
